FAERS Safety Report 14198284 (Version 1)
Quarter: 2017Q4

REPORT INFORMATION
  Report Type: Spontaneous
  Country: US (occurrence: US)
  Receive Date: 20171116
  Receipt Date: 20171116
  Transmission Date: 20180321
  Serious: No
  Sender: FDA-Public Use
  Company Number: None

PATIENT
  Age: 61 Year
  Sex: Female
  Weight: 65.25 kg

DRUGS (8)
  1. CHLORHEXIDINE GLUCONATE 0.12%, ORAL RINSE, USP [Suspect]
     Active Substance: CHLORHEXIDINE GLUCONATE
     Indication: INFECTION PROPHYLAXIS
     Dosage: ?          QUANTITY:1 TABLESPOON(S);OTHER ROUTE:SWISHED IN MOUTH 60 SEC THEN SPIT OUT?
     Dates: start: 20171006, end: 20171007
  2. CHLORHEXIDINE GLUCONATE 0.12%, ORAL RINSE, USP [Suspect]
     Active Substance: CHLORHEXIDINE GLUCONATE
     Indication: POSTOPERATIVE CARE
     Dosage: ?          QUANTITY:1 TABLESPOON(S);OTHER ROUTE:SWISHED IN MOUTH 60 SEC THEN SPIT OUT?
     Dates: start: 20171006, end: 20171007
  3. DECONGESTANT [Concomitant]
     Active Substance: UNSPECIFIED INGREDIENT
  4. NAPROXEN SODIUM. [Concomitant]
     Active Substance: NAPROXEN SODIUM
  5. ACETAMINOPHNE/HYDROCODONE [Concomitant]
     Active Substance: ACETAMINOPHEN\HYDROCODONE
  6. LORATIDINE [Concomitant]
     Active Substance: LORATADINE
  7. GUAFENISIN [Concomitant]
  8. VITAMIN D + CALCIUM SUPPLEMENT [Concomitant]

REACTIONS (2)
  - Therapy cessation [None]
  - Rash [None]

NARRATIVE: CASE EVENT DATE: 20171007
